FAERS Safety Report 7260496-7 (Version None)
Quarter: 2011Q1

REPORT INFORMATION
  Report Type: 
  Country: None (occurrence: None)
  Receive Date: 20110130
  Receipt Date: 20101119
  Transmission Date: 20110831
  Serious: No
  Sender: FDA-Public Use
  Company Number: US-ABBOTT-10P-163-0686975-00

PATIENT
  Age: 63 Year
  Sex: Female

DRUGS (13)
  1. HUMIRA [Suspect]
     Indication: CROHN'S DISEASE
     Dates: start: 20101108
  2. HUMIRA [Suspect]
     Dates: start: 20101122
  3. IBUPROFEN [Concomitant]
     Indication: NECK PAIN
     Dosage: THREE TIMES DAILY AS NEEDED
  4. IBUPROFEN [Concomitant]
     Indication: MUSCULOSKELETAL PAIN
  5. ZOLOFT [Concomitant]
     Indication: PRODUCT USED FOR UNKNOWN INDICATION
     Dosage: ON OCCASION IF NEEDED
  6. BENZONATATE [Concomitant]
     Indication: COUGH
  7. COLAZAL [Concomitant]
     Indication: CROHN'S DISEASE
  8. POTASSIUM CL [Concomitant]
     Indication: HEART RATE
  9. VIT [Concomitant]
     Indication: PRODUCT USED FOR UNKNOWN INDICATION
  10. CITRUCEL [Concomitant]
     Indication: PRODUCT USED FOR UNKNOWN INDICATION
  11. HUMIRA [Suspect]
  12. VIT B12 [Concomitant]
     Indication: PRODUCT USED FOR UNKNOWN INDICATION
     Route: 030
  13. TUMS [Concomitant]
     Indication: PRODUCT USED FOR UNKNOWN INDICATION

REACTIONS (3)
  - PAIN [None]
  - BURSITIS [None]
  - INJECTION SITE PAIN [None]
